FAERS Safety Report 7937028-0 (Version None)
Quarter: 2011Q4

REPORT INFORMATION
  Report Type: 
  Country: None (occurrence: None)
  Receive Date: 20111123
  Receipt Date: 20111118
  Transmission Date: 20120403
  Serious: Yes (Death, Hospitalization)
  Sender: FDA-Public Use
  Company Number: DE-ROCHE-756866

PATIENT
  Age: 58 Year
  Sex: Male

DRUGS (7)
  1. RITUXIMAB [Suspect]
     Indication: CHRONIC LYMPHOCYTIC LEUKAEMIA
     Dosage: LAST ADMINISTRATION PRIOR TO THE EVENTS IN SEP 2010
     Route: 042
     Dates: start: 20080108, end: 20080722
  2. FLUDARABINE PHOSPHATE [Concomitant]
     Indication: B-CELL LYMPHOMA
  3. PANTOPRAZOLE [Concomitant]
     Indication: GASTRITIS PROPHYLAXIS
     Route: 048
     Dates: start: 20110112
  4. ACETAMINOPHEN [Concomitant]
     Indication: PAIN
     Dates: start: 20110201
  5. CYCLOPHOSPHAMIDE [Concomitant]
     Indication: B-CELL LYMPHOMA
     Dates: start: 20080108, end: 20090722
  6. RITUXIMAB [Suspect]
     Dates: start: 20081023, end: 20100922
  7. ENOXAPARIN SODIUM [Concomitant]
     Route: 058
     Dates: start: 20110112

REACTIONS (5)
  - APHASIA [None]
  - VISUAL ACUITY REDUCED [None]
  - PARESIS [None]
  - ATAXIA [None]
  - ENCEPHALITIS [None]
